FAERS Safety Report 14290542 (Version 9)
Quarter: 2018Q3

REPORT INFORMATION
  Report Type: Spontaneous
  Country: US (occurrence: US)
  Receive Date: 20171215
  Receipt Date: 20180813
  Transmission Date: 20181010
  Serious: Yes (Congenital Anomaly, Other)
  Sender: FDA-Public Use
  Company Number: PHHY2015US132461

PATIENT
  Sex: Female

DRUGS (3)
  1. ZOFRAN [Suspect]
     Active Substance: ONDANSETRON HYDROCHLORIDE
     Indication: FOETAL EXPOSURE DURING PREGNANCY
     Dosage: MOTHER DOSE: UNK
     Route: 064
  2. ONDANSETRON. [Suspect]
     Active Substance: ONDANSETRON
     Indication: FOETAL EXPOSURE DURING PREGNANCY
     Dosage: MOTHER^S DOSE: 1 DF, Q6H
     Route: 064
  3. ONDANSETRON DR REDDY [Suspect]
     Active Substance: ONDANSETRON
     Indication: FOETAL EXPOSURE DURING PREGNANCY
     Dosage: MOTHER^S DOSE: 1 DF, Q6H
     Route: 064

REACTIONS (60)
  - Velo-cardio-facial syndrome [Unknown]
  - Congenital great vessel anomaly [Unknown]
  - Left-to-right cardiac shunt [Unknown]
  - Pulmonary congestion [Unknown]
  - Pulmonary oedema [Unknown]
  - Developmental delay [Unknown]
  - Pleural effusion [Unknown]
  - Cough [Unknown]
  - Cardiomegaly [Unknown]
  - Sleep apnoea syndrome [Unknown]
  - Atelectasis neonatal [Unknown]
  - Tricuspid valve incompetence [Unknown]
  - Feeding disorder [Unknown]
  - Eye discharge [Unknown]
  - Congenital arterial malformation [Unknown]
  - Atrial septal defect [Unknown]
  - Necrotising colitis [Unknown]
  - Hypokalaemia [Unknown]
  - Injury [Unknown]
  - Pyrexia [Unknown]
  - Dyspnoea [Unknown]
  - Food intolerance [Unknown]
  - Tonsillar hypertrophy [Unknown]
  - Cystic lymphangioma [Unknown]
  - Cytogenetic abnormality [Unknown]
  - Failure to thrive [Unknown]
  - Pneumatosis [Unknown]
  - Tremor [Unknown]
  - Ear pain [Unknown]
  - Urine output decreased [Unknown]
  - Seizure [Unknown]
  - Tachycardia [Unknown]
  - Haematochezia [Unknown]
  - Foetal exposure during pregnancy [Unknown]
  - Eye movement disorder [Unknown]
  - Bronchitis [Unknown]
  - Urinary tract infection [Unknown]
  - Talipes [Unknown]
  - Right-to-left cardiac shunt [Unknown]
  - Hypoxia [Unknown]
  - Acute respiratory failure [Unknown]
  - Otitis media chronic [Unknown]
  - Diarrhoea [Unknown]
  - Gastrostomy tube site complication [Unknown]
  - Ventricular septal defect [Unknown]
  - DiGeorge^s syndrome [Unknown]
  - Congenital pulmonary valve atresia [Unknown]
  - Gastrooesophageal reflux disease [Unknown]
  - Nasal congestion [Unknown]
  - Vomiting [Unknown]
  - Speech disorder [Unknown]
  - Adenoidal hypertrophy [Unknown]
  - Fallot^s tetralogy [Unknown]
  - Heart disease congenital [Unknown]
  - Thrombocytopenia [Unknown]
  - Croup infectious [Unknown]
  - Gastric fistula [Unknown]
  - Fatigue [Unknown]
  - Dysphagia [Unknown]
  - Abdominal distension [Unknown]
